FAERS Safety Report 11300199 (Version 1)
Quarter: 2015Q3

REPORT INFORMATION
  Report Type: Spontaneous
  Country: US (occurrence: US)
  Receive Date: 20150722
  Receipt Date: 20150722
  Transmission Date: 20151125
  Serious: No
  Sender: FDA-Public Use
  Company Number: US-ELI_LILLY_AND_COMPANY-US201307008792

PATIENT
  Sex: Female

DRUGS (4)
  1. FERRITIN [Concomitant]
     Active Substance: FERRITIN
     Dosage: UNK, UNKNOWN
     Route: 065
  2. METOPROLOL [Concomitant]
     Active Substance: METOPROLOL
     Dosage: UNK, UNKNOWN
     Route: 065
  3. NEURONTIN [Concomitant]
     Active Substance: GABAPENTIN
     Dosage: UNK, UNKNOWN
     Route: 065
  4. EVISTA [Suspect]
     Active Substance: RALOXIFENE HYDROCHLORIDE
     Indication: OSTEOPOROSIS
     Dosage: 60 MG, QD
     Route: 065

REACTIONS (7)
  - Pain in extremity [Unknown]
  - Feeling hot [Unknown]
  - Facial pain [Unknown]
  - Pigmentation disorder [Unknown]
  - Dizziness [Unknown]
  - Glossodynia [Unknown]
  - Hyperhidrosis [Unknown]
